FAERS Safety Report 8891086 (Version 1)
Quarter: 2012Q4

REPORT INFORMATION
  Report Type: 
  Country: NO (occurrence: NO)
  Receive Date: 20121107
  Receipt Date: 20121107
  Transmission Date: 20130627
  Serious: Yes (Hospitalization)
  Sender: FDA-Public Use
  Company Number: NO-PFIZER INC-2012274385

PATIENT
  Age: 24 Year
  Sex: Female

DRUGS (1)
  1. LOETTE-28 [Suspect]
     Indication: CONTRACEPTION
     Dosage: 1 DF, 1x/day
     Route: 048
     Dates: start: 201208, end: 20121022

REACTIONS (5)
  - Blood pressure decreased [Recovered/Resolved]
  - Swelling [Recovered/Resolved]
  - Feeling cold [Recovered/Resolved]
  - Anaphylactoid reaction [Recovered/Resolved]
  - Arthralgia [Recovered/Resolved]
